FAERS Safety Report 5419946-0 (Version None)
Quarter: 2007Q3

REPORT INFORMATION
  Report Type: 
  Country: None (occurrence: None)
  Receive Date: 20070820
  Receipt Date: 20070811
  Transmission Date: 20080115
  Serious: Yes (Other)
  Sender: FDA-Public Use
  Company Number: US-PFIZER INC-2007067073

PATIENT
  Sex: Female
  Weight: 72.727 kg

DRUGS (11)
  1. CHANTIX [Suspect]
     Indication: SMOKING CESSATION THERAPY
     Route: 048
  2. PROTONIX [Concomitant]
  3. PAXIL [Concomitant]
  4. ZOCOR [Concomitant]
  5. AMBIEN [Concomitant]
  6. XANAX [Concomitant]
  7. VALTREX [Concomitant]
  8. DETROL LA [Concomitant]
  9. MORPHINE [Concomitant]
  10. VICODIN [Concomitant]
  11. PREDNISONE [Concomitant]

REACTIONS (3)
  - BLOOD CHOLESTEROL INCREASED [None]
  - COORDINATION ABNORMAL [None]
  - MUSCULAR WEAKNESS [None]
